FAERS Safety Report 14525282 (Version 1)
Quarter: 2018Q1

REPORT INFORMATION
  Report Type: Spontaneous
  Country: US (occurrence: US)
  Receive Date: 20180210
  Receipt Date: 20180210
  Transmission Date: 20180509
  Serious: No
  Sender: FDA-Public Use
  Company Number: None

PATIENT
  Age: 52 Year
  Sex: Female
  Weight: 81 kg

DRUGS (16)
  1. GLIPIZIDE. [Concomitant]
     Active Substance: GLIPIZIDE
  2. TROPICAMIDE OPHTHALMIC SOLUTION [Suspect]
     Active Substance: TROPICAMIDE
     Indication: OPHTHALMOLOGICAL EXAMINATION
     Dosage: QUANTITY:1 DROP(S);OTHER FREQUENCY:FOR EYE EXAM;?
     Route: 047
  3. TRULICITY [Concomitant]
     Active Substance: DULAGLUTIDE
  4. ROSUVASTATIN. [Concomitant]
     Active Substance: ROSUVASTATIN
  5. HUMALOG [Concomitant]
     Active Substance: INSULIN LISPRO
  6. VITAMIN D3 [Concomitant]
     Active Substance: CHOLECALCIFEROL
  7. METFORMIN [Concomitant]
     Active Substance: METFORMIN HYDROCHLORIDE
  8. LANTUS [Concomitant]
     Active Substance: INSULIN GLARGINE
  9. CALTRATE [Concomitant]
     Active Substance: CALCIUM CARBONATE
  10. ALBUTEROL SULFATE. [Concomitant]
     Active Substance: ALBUTEROL SULFATE
  11. CENTRUM SILVER [Concomitant]
     Active Substance: MINERALS\VITAMINS
  12. MOMETASONE FUROATE. [Concomitant]
     Active Substance: MOMETASONE FUROATE
  13. VITAMIN B12 [Concomitant]
     Active Substance: CYANOCOBALAMIN
  14. ANASTROZOLE. [Concomitant]
     Active Substance: ANASTROZOLE
  15. BIOTIN [Concomitant]
     Active Substance: BIOTIN
  16. PEPPERMINT OIL [Concomitant]
     Active Substance: PEPPERMINT OIL

REACTIONS (3)
  - Sneezing [None]
  - Oropharyngeal pain [None]
  - Rhinorrhoea [None]

NARRATIVE: CASE EVENT DATE: 20180206
